FAERS Safety Report 17746389 (Version 1)
Quarter: 2020Q2

REPORT INFORMATION
  Report Type: Spontaneous
  Country: US (occurrence: US)
  Receive Date: 20200505
  Receipt Date: 20200505
  Transmission Date: 20200714
  Serious: Yes (Hospitalization)
  Sender: FDA-Public Use
  Company Number: None

PATIENT
  Age: 62 Year
  Sex: Male
  Weight: 162 kg

DRUGS (6)
  1. LASIX [Concomitant]
     Active Substance: FUROSEMIDE
  2. NAPROXEN. [Concomitant]
     Active Substance: NAPROXEN
  3. TYLENOL [Concomitant]
     Active Substance: ACETAMINOPHEN
  4. TRIAMCINOLONE ACETONIDE CREAM [Suspect]
     Active Substance: TRIAMCINOLONE ACETONIDE
     Indication: LYMPHOEDEMA
     Dosage: ?          OTHER FREQUENCY:2-3 TIMES A WEEK;?
     Route: 061
     Dates: start: 20190415, end: 20200430
  5. TRAMADOL. [Concomitant]
     Active Substance: TRAMADOL
  6. BENADRYL [Concomitant]
     Active Substance: DIPHENHYDRAMINE HYDROCHLORIDE

REACTIONS (4)
  - Aggression [None]
  - Verbal abuse [None]
  - Paranoia [None]
  - Insomnia [None]

NARRATIVE: CASE EVENT DATE: 20200216
